FAERS Safety Report 7888694-X (Version None)
Quarter: 2011Q4

REPORT INFORMATION
  Report Type: 
  Country: None (occurrence: None)
  Receive Date: 20111103
  Receipt Date: 20111031
  Transmission Date: 20120403
  Serious: Yes (Hospitalization, Other)
  Sender: FDA-Public Use
  Company Number: JP-BAYER-201012239BYL

PATIENT
  Age: 55 Year
  Sex: Male
  Weight: 52 kg

DRUGS (13)
  1. NEXAVAR [Suspect]
     Indication: HEPATIC NEOPLASM MALIGNANT
     Dosage: 400 MG, QD
     Route: 048
     Dates: start: 20100413, end: 20100415
  2. MAGMITT [Concomitant]
     Indication: CONSTIPATION
     Dosage: 990 MG (DAILY DOSE), , ORAL
     Route: 048
     Dates: start: 20100207, end: 20100420
  3. URSO 250 [Concomitant]
     Indication: CHRONIC HEPATITIS
     Dosage: 600 MG (DAILY DOSE), , ORAL
     Route: 048
     Dates: start: 20100413, end: 20100422
  4. OXYCONTIN [Concomitant]
     Indication: CANCER PAIN
     Dosage: 20 MG (DAILY DOSE), , ORAL
     Route: 048
     Dates: start: 20100110, end: 20100419
  5. MUCOSTA [Concomitant]
     Route: 048
     Dates: end: 20100127
  6. BARACLUDE [Concomitant]
     Indication: HEPATITIS B
     Dosage: 0.5 MG (DAILY DOSE), , ORAL
     Route: 048
     Dates: start: 20100128
  7. LIVACT [Concomitant]
     Indication: HYPOALBUMINAEMIA
     Dosage: 12.45 G (DAILY DOSE), , ORAL
     Route: 048
     Dates: start: 20100413, end: 20100422
  8. NEXAVAR [Suspect]
     Dosage: DAILY DOSE 800 MG
     Route: 048
     Dates: start: 20100416, end: 20100419
  9. LOXONIN [Concomitant]
     Indication: CANCER PAIN
     Dosage: 180 MG (DAILY DOSE), , ORAL
     Route: 048
     Dates: start: 20100128, end: 20100419
  10. FAMOSTAGINE [Concomitant]
     Dosage: 20 MG (DAILY DOSE), , ORAL
     Route: 048
     Dates: end: 20100127
  11. NEXAVAR [Suspect]
     Dosage: DAILY DOSE 400 MG
     Route: 048
     Dates: start: 20100420, end: 20100421
  12. OMEPRAZOLE [Concomitant]
     Indication: GASTRITIS
     Dosage: 10 MG (DAILY DOSE), , ORAL
     Route: 048
     Dates: start: 20100128, end: 20100428
  13. PANCREAZE [Concomitant]
     Route: 048
     Dates: end: 20100127

REACTIONS (9)
  - TUMOUR NECROSIS [None]
  - BACK PAIN [None]
  - PYREXIA [None]
  - BLOOD PRESSURE SYSTOLIC INCREASED [None]
  - BLOOD PRESSURE INCREASED [None]
  - DECREASED APPETITE [None]
  - DIARRHOEA [None]
  - HEPATIC FUNCTION ABNORMAL [None]
  - NAUSEA [None]
